FAERS Safety Report 8153390-0 (Version None)
Quarter: 2012Q1

REPORT INFORMATION
  Report Type: 
  Country: None (occurrence: None)
  Receive Date: 20120221
  Receipt Date: 20120215
  Transmission Date: 20120608
  Serious: Yes (Death, Hospitalization)
  Sender: FDA-Public Use
  Company Number: JP-SANOFI-AVENTIS-200912840JP

PATIENT
  Age: 59 Year
  Sex: Male
  Weight: 65 kg

DRUGS (4)
  1. GLYCEOL [Concomitant]
  2. DEXAMETHASONE [Concomitant]
  3. DOCETAXEL [Suspect]
     Dosage: SINGLE DOSE WAS ADMINISTERED
     Route: 041
     Dates: start: 20090428, end: 20090428
  4. BETAMETHASONE [Concomitant]

REACTIONS (5)
  - CELL MARKER INCREASED [None]
  - SURFACTANT PROTEIN INCREASED [None]
  - INTERSTITIAL LUNG DISEASE [None]
  - NEUTROPHIL COUNT DECREASED [None]
  - RESPIRATORY FAILURE [None]
